FAERS Safety Report 24411594 (Version 1)
Quarter: 2024Q4

REPORT INFORMATION
  Report Type: Spontaneous
  Country: US (occurrence: None)
  Receive Date: 20241007
  Receipt Date: 20241007
  Transmission Date: 20250115
  Serious: Yes (Hospitalization)
  Sender: Public
  Company Number: None

PATIENT
  Sex: Female

DRUGS (2)
  1. PIRFENIDONE [Suspect]
     Active Substance: PIRFENIDONE
     Indication: Idiopathic pulmonary fibrosis
     Dosage: FREQUENCY : 3 TIMES A DAY;?
     Route: 048
     Dates: start: 202407
  2. ESBRIET [Concomitant]
     Active Substance: PIRFENIDONE

REACTIONS (5)
  - Dyspnoea [None]
  - Dyspnoea [None]
  - Pulmonary oedema [None]
  - Diarrhoea [None]
  - Fatigue [None]
